FAERS Safety Report 6140545-X (Version None)
Quarter: 2009Q2

REPORT INFORMATION
  Report Type: 
  Country: None (occurrence: None)
  Receive Date: 20090402
  Receipt Date: 20090324
  Transmission Date: 20091009
  Serious: Yes (Other)
  Sender: FDA-Public Use
  Company Number: GB-RANBAXY-2006RR-03721

PATIENT
  Age: 58 Year
  Sex: Male

DRUGS (6)
  1. AMIODARONE HCL [Suspect]
     Indication: VENTRICULAR TACHYCARDIA
     Dosage: 400 MG, UNK
     Route: 048
  2. AMIODARONE HCL [Suspect]
     Route: 042
  3. BISOPROLOL [Suspect]
     Indication: VENTRICULAR TACHYCARDIA
  4. MAGNESIUM SULFATE [Suspect]
     Indication: VENTRICULAR TACHYCARDIA
     Route: 042
  5. MEXITIL [Suspect]
     Indication: VENTRICULAR TACHYCARDIA
     Dosage: 750 MG, SINGLE
  6. RAMIPRIL [Suspect]
     Indication: VENTRICULAR TACHYCARDIA

REACTIONS (1)
  - DRUG INEFFECTIVE [None]
